FAERS Safety Report 12929724 (Version 1)
Quarter: 2016Q4

REPORT INFORMATION
  Report Type: Spontaneous
  Country: FR (occurrence: FR)
  Receive Date: 20161110
  Receipt Date: 20161110
  Transmission Date: 20170207
  Serious: Yes (Other)
  Sender: FDA-Public Use
  Company Number: FR-B. BRAUN MEDICAL INC.-1059425

PATIENT
  Age: 82 Year
  Sex: Female

DRUGS (20)
  1. ATROVENT [Suspect]
     Active Substance: IPRATROPIUM BROMIDE
     Route: 055
     Dates: start: 20160928, end: 20161001
  2. LEVOTHYROX [Concomitant]
     Active Substance: LEVOTHYROXINE
     Route: 048
     Dates: end: 20161008
  3. TAHOR [Concomitant]
     Active Substance: ATORVASTATIN CALCIUM
     Dates: end: 20160927
  4. FUROSEMIDE. [Concomitant]
     Active Substance: FUROSEMIDE
     Route: 048
  5. BISOPROLOL [Concomitant]
     Active Substance: BISOPROLOL
     Dates: end: 20160927
  6. COLCHICINE. [Suspect]
     Active Substance: COLCHICINE
     Route: 048
     Dates: start: 20160501, end: 20160929
  7. METRONIDAZOLE. [Suspect]
     Active Substance: METRONIDAZOLE
     Route: 042
     Dates: start: 20160928, end: 20161001
  8. ALLOPURINOL. [Suspect]
     Active Substance: ALLOPURINOL
     Route: 048
     Dates: end: 20160927
  9. ESOMEPRAZOLE 20 MG [Suspect]
     Active Substance: ESOMEPRAZOLE
     Route: 048
     Dates: start: 20160927, end: 20161005
  10. GAVISCON [Concomitant]
     Active Substance: ALUMINUM HYDROXIDE\MAGNESIUM CARBONATE
     Dates: end: 20160927
  11. PARACETAMOL [Suspect]
     Active Substance: ACETAMINOPHEN
     Route: 048
     Dates: start: 20160927, end: 20160930
  12. GENTAMICIN 80MG [Suspect]
     Active Substance: GENTAMICIN
     Route: 042
     Dates: start: 20160928, end: 20160928
  13. DEPAMIDE [Concomitant]
     Active Substance: VALPROMIDE
     Dates: end: 20160927
  14. CEFTRIAXONE. [Suspect]
     Active Substance: CEFTRIAXONE
     Route: 042
     Dates: start: 20160927, end: 20161001
  15. VANCOMYCIN [Suspect]
     Active Substance: VANCOMYCIN
     Route: 042
     Dates: start: 20160928, end: 20160930
  16. RAMIPRIL. [Concomitant]
     Active Substance: RAMIPRIL
     Dates: end: 20160927
  17. SALBUTAMOL 2.5 MG/2.5 ML [Suspect]
     Active Substance: ALBUTEROL
     Route: 055
     Dates: start: 20160928, end: 20161001
  18. ELIQUIS [Concomitant]
     Active Substance: APIXABAN
     Route: 048
     Dates: end: 20161008
  19. SERTRALINE [Concomitant]
     Active Substance: SERTRALINE HYDROCHLORIDE
     Route: 048
     Dates: end: 20160927
  20. ATARAX [Concomitant]
     Active Substance: HYDROXYZINE\HYDROXYZINE HYDROCHLORIDE

REACTIONS (3)
  - Rash maculo-papular [None]
  - Drug reaction with eosinophilia and systemic symptoms [Recovering/Resolving]
  - Pruritus [None]

NARRATIVE: CASE EVENT DATE: 20160930
